FAERS Safety Report 18659364 (Version 1)
Quarter: 2020Q4

REPORT INFORMATION
  Report Type: Spontaneous
  Country: FR (occurrence: FR)
  Receive Date: 20201224
  Receipt Date: 20201224
  Transmission Date: 20210114
  Serious: Yes (Hospitalization)
  Sender: FDA-Public Use
  Company Number: ALC2020FR010425

PATIENT

DRUGS (6)
  1. ATROPINE. [Suspect]
     Active Substance: ATROPINE
     Indication: CHORIORETINITIS
     Route: 047
  2. CHIBRO CADRON [Suspect]
     Active Substance: DEXAMETHASONE SODIUM PHOSPHATE\NEOMYCIN SULFATE
     Indication: CHORIORETINITIS
     Route: 047
     Dates: start: 20201027, end: 20201205
  3. IMIPENEM [Suspect]
     Active Substance: IMIPENEM
     Indication: ENDOPHTHALMITIS
     Route: 041
     Dates: start: 20201027, end: 20201104
  4. LEVOFLOXACINE [LEVOFLOXACIN] [Suspect]
     Active Substance: LEVOFLOXACIN
     Indication: CHORIORETINITIS
     Route: 041
     Dates: start: 20201027, end: 20201205
  5. ARTELAC [HYPROMELLOSE] [Suspect]
     Active Substance: HYPROMELLOSES
     Indication: CHORIORETINITIS
     Route: 047
     Dates: start: 20201027, end: 20201205
  6. MEROPENEM. [Suspect]
     Active Substance: MEROPENEM
     Indication: CHORIORETINITIS
     Route: 041
     Dates: start: 20201104, end: 20201205

REACTIONS (1)
  - Toxic epidermal necrolysis [Not Recovered/Not Resolved]

NARRATIVE: CASE EVENT DATE: 20201127
